FAERS Safety Report 4492013-9 (Version None)
Quarter: 2004Q4

REPORT INFORMATION
  Report Type: 
  Country: None (occurrence: None)
  Receive Date: 20041101
  Receipt Date: 20041019
  Transmission Date: 20050328
  Serious: Yes (Life-Threatening)
  Sender: FDA-Public Use
  Company Number: 2004-121412-NL

PATIENT
  Age: 23 Year
  Sex: Female

DRUGS (7)
  1. DESOGESTREL/EF [Suspect]
     Indication: CONTRACEPTION
     Dosage: 1 DF
     Route: 048
     Dates: start: 19980101, end: 20040101
  2. CELECOXIB [Suspect]
     Indication: ARTHRITIS
     Dosage: 400 MG
     Route: 048
     Dates: start: 20031101, end: 20040526
  3. ETANERCEPT [Suspect]
     Indication: PSORIATIC ARTHROPATHY
     Dosage: DF
     Route: 058
     Dates: start: 20031101, end: 20040526
  4. SILYMARIN [Concomitant]
  5. OSSOFORTIN [Concomitant]
  6. PREDNISOLONE ACETATE [Concomitant]
  7. URSODEOXYCHOLIC ACID [Concomitant]

REACTIONS (4)
  - HEPATIC STEATOSIS [None]
  - HEPATITIS TOXIC [None]
  - HEPATOTOXICITY [None]
  - SINUS TACHYCARDIA [None]
